FAERS Safety Report 4401169-5 (Version None)
Quarter: 2004Q3

REPORT INFORMATION
  Report Type: 
  Country: None (occurrence: None)
  Receive Date: 20040907
  Receipt Date: 20031125
  Transmission Date: 20050211
  Serious: No
  Sender: FDA-Public Use
  Company Number: US-BRISTOL-MYERS SQUIBB COMPANY-12447488

PATIENT
  Age: 65 Year
  Sex: Female
  Weight: 71 kg

DRUGS (5)
  1. COUMADIN [Suspect]
     Indication: CARDIAC PACEMAKER INSERTION
     Route: 048
  2. COUMADIN [Suspect]
     Indication: ATRIAL FIBRILLATION
     Route: 048
  3. SYNTHROID [Concomitant]
  4. MULTIVITAMIN [Concomitant]
  5. CALCIUM [Concomitant]

REACTIONS (2)
  - EYE PRURITUS [None]
  - EYE SWELLING [None]
